FAERS Safety Report 9022119 (Version 1)
Quarter: 2013Q1

REPORT INFORMATION
  Report Type: Spontaneous
  Country: US (occurrence: US)
  Receive Date: 20130118
  Receipt Date: 20130118
  Transmission Date: 20140127
  Serious: No
  Sender: FDA-Public Use
  Company Number: US-SANOFI-AVENTIS-2012SA078414

PATIENT
  Age: 86 Year
  Sex: Male

DRUGS (2)
  1. LASIX [Suspect]
     Route: 065
  2. AMBRISENTAN [Suspect]
     Route: 048
     Dates: start: 20120229

REACTIONS (2)
  - Weight decreased [Unknown]
  - Oedema [Unknown]
